FAERS Safety Report 10575205 (Version 3)
Quarter: 2014Q4

REPORT INFORMATION
  Report Type: Spontaneous
  Country: JP (occurrence: JP)
  Receive Date: 20141111
  Receipt Date: 20141218
  Transmission Date: 20150529
  Serious: Yes (Hospitalization)
  Sender: FDA-Public Use
  Company Number: JP-009507513-1411JPN003534

PATIENT
  Age: 69 Year
  Sex: Female

DRUGS (2)
  1. PEGINTRON [Suspect]
     Active Substance: PEGINTERFERON ALFA-2B
     Indication: CHRONIC HEPATITIS C
     Dosage: DAILY DOSAGE UNKNOWN
     Route: 058
     Dates: start: 2014
  2. REBETOL [Suspect]
     Active Substance: RIBAVIRIN
     Indication: CHRONIC HEPATITIS C
     Dosage: DAILY DOSAGE UNKNOWN
     Route: 048
     Dates: start: 2014

REACTIONS (1)
  - Cerebellar infarction [Recovered/Resolved]

NARRATIVE: CASE EVENT DATE: 20141105
